FAERS Safety Report 7235608-1 (Version None)
Quarter: 2011Q1

REPORT INFORMATION
  Report Type: 
  Country: None (occurrence: None)
  Receive Date: 20110120
  Receipt Date: 20110118
  Transmission Date: 20110831
  Serious: Yes (Death, Hospitalization)
  Sender: FDA-Public Use
  Company Number: PHHY2010TW29292

PATIENT
  Age: 83 Year
  Sex: Male

DRUGS (1)
  1. ACLASTA [Suspect]
     Indication: OSTEOPOROSIS
     Dosage: 5 MG/100 ML
     Route: 042
     Dates: start: 20100413

REACTIONS (4)
  - CONSTIPATION [None]
  - DEATH [None]
  - DECREASED APPETITE [None]
  - INTESTINAL OBSTRUCTION [None]
